FAERS Safety Report 18604242 (Version 1)
Quarter: 2020Q4

REPORT INFORMATION
  Report Type: Spontaneous
  Country: PL (occurrence: PL)
  Receive Date: 20201211
  Receipt Date: 20201211
  Transmission Date: 20210114
  Serious: Yes (Hospitalization, Other)
  Sender: FDA-Public Use
  Company Number: PL-B.I. PHARMACEUTICALS,INC./RIDGEFIELD-2020-BI-066815

PATIENT
  Age: 70 Year
  Sex: Female

DRUGS (3)
  1. OFEV [Suspect]
     Active Substance: NINTEDANIB
     Dates: start: 20200520
  2. OFEV [Suspect]
     Active Substance: NINTEDANIB
     Dosage: THE PATIENT STOPPED TAKING THE DRUG FOR ABOUT A WEEK.
     Dates: start: 20181208, end: 20190405
  3. OFEV [Suspect]
     Active Substance: NINTEDANIB
     Indication: PRODUCT USED FOR UNKNOWN INDICATION
     Dates: start: 20181108

REACTIONS (6)
  - Gastrointestinal haemorrhage [Unknown]
  - Transaminases abnormal [Unknown]
  - Coronary artery disease [Unknown]
  - Amyotrophic lateral sclerosis [Unknown]
  - Abdominal pain [Unknown]
  - Syringomyelia [Unknown]

NARRATIVE: CASE EVENT DATE: 20190405
